FAERS Safety Report 8005797-X (Version None)
Quarter: 2011Q4

REPORT INFORMATION
  Report Type: 
  Country: None (occurrence: None)
  Receive Date: 20111223
  Receipt Date: 20111215
  Transmission Date: 20120403
  Serious: Yes (Hospitalization, Other)
  Sender: FDA-Public Use
  Company Number: US-ROCHE-1004793

PATIENT
  Sex: Female

DRUGS (7)
  1. XOLAIR [Suspect]
     Route: 058
     Dates: start: 20110630
  2. ADVAIR DISKUS 100/50 [Concomitant]
  3. SINGULAIR [Concomitant]
  4. XOLAIR [Suspect]
     Indication: ASTHMA
     Route: 058
     Dates: start: 20100322, end: 20110630
  5. VENTOLIN [Concomitant]
  6. ADVENTAN [Concomitant]
  7. PREDNISONE TAB [Concomitant]

REACTIONS (14)
  - LUNG INFECTION [None]
  - DYSPNOEA [None]
  - OEDEMA PERIPHERAL [None]
  - WHEEZING [None]
  - PNEUMONIA [None]
  - BACK PAIN [None]
  - PAIN IN EXTREMITY [None]
  - COUGH [None]
  - CHEST PAIN [None]
  - BRONCHITIS [None]
  - PRODUCTIVE COUGH [None]
  - RESPIRATORY TRACT INFECTION [None]
  - URINARY TRACT INFECTION [None]
  - RALES [None]
